FAERS Safety Report 25129067 (Version 1)
Quarter: 2025Q1

REPORT INFORMATION
  Report Type: Spontaneous
  Country: US (occurrence: US)
  Receive Date: 20250327
  Receipt Date: 20250327
  Transmission Date: 20250408
  Serious: Yes (Other)
  Sender: DR REDDYS
  Company Number: US-DRL-USA-USA/2025/03/004154

PATIENT
  Age: 33 Year
  Sex: Female

DRUGS (3)
  1. FENOFIBRATE [Suspect]
     Active Substance: FENOFIBRATE
     Indication: Hypertriglyceridaemia
  2. PRAVASTATIN [Suspect]
     Active Substance: PRAVASTATIN
     Indication: Hypertriglyceridaemia
  3. TYLENOL [Suspect]
     Active Substance: ACETAMINOPHEN
     Indication: Abdominal pain upper

REACTIONS (2)
  - Exposure during pregnancy [Unknown]
  - Contraindicated product administered [Unknown]
